FAERS Safety Report 7107270-X (Version None)
Quarter: 2010Q4

REPORT INFORMATION
  Report Type: 
  Country: None (occurrence: None)
  Receive Date: 20101116
  Receipt Date: 20100917
  Transmission Date: 20110411
  Serious: No
  Sender: FDA-Public Use
  Company Number: US-ABBOTT-10P-163-0672633-00

PATIENT
  Sex: Female
  Weight: 86.26 kg

DRUGS (2)
  1. SIMCOR [Suspect]
     Indication: BLOOD CHOLESTEROL INCREASED
     Route: 048
     Dates: start: 20100701, end: 20100915
  2. SYNTHROID [Concomitant]
     Indication: HYPOTHYROIDISM
     Route: 058

REACTIONS (4)
  - HOT FLUSH [None]
  - PARAESTHESIA [None]
  - SENSORY DISTURBANCE [None]
  - URTICARIA [None]
